FAERS Safety Report 18139179 (Version 1)
Quarter: 2020Q3

REPORT INFORMATION
  Report Type: Spontaneous
  Country: US (occurrence: US)
  Receive Date: 20200812
  Receipt Date: 20200812
  Transmission Date: 20201103
  Serious: Yes (Other)
  Sender: FDA-Public Use
  Company Number: US-ALVOGEN-2020-ALVOGEN-108966

PATIENT
  Sex: Female

DRUGS (1)
  1. HYDROCODONE BITARTRATE. [Suspect]
     Active Substance: HYDROCODONE BITARTRATE
     Indication: PRODUCT USED FOR UNKNOWN INDICATION

REACTIONS (9)
  - Drug dependence [Unknown]
  - Pyrexia [Unknown]
  - Insomnia [Unknown]
  - Withdrawal syndrome [Unknown]
  - Pain [Unknown]
  - Diarrhoea [Unknown]
  - Tremor [Unknown]
  - Hyperhidrosis [Unknown]
  - Influenza [Unknown]
